FAERS Safety Report 6706522-2 (Version None)
Quarter: 2010Q2

REPORT INFORMATION
  Report Type: 
  Country: None (occurrence: None)
  Receive Date: 20100503
  Receipt Date: 20100427
  Transmission Date: 20101027
  Serious: Yes (Life-Threatening, Other)
  Sender: FDA-Public Use
  Company Number: PHHY2010JP20510

PATIENT
  Sex: Male
  Weight: 75 kg

DRUGS (10)
  1. NEORAL [Suspect]
     Indication: PEMPHIGOID
     Dosage: 50 MG, BID
     Route: 048
     Dates: start: 20091124, end: 20100330
  2. PREDONINE [Suspect]
     Dosage: 8.25 MG, BID
     Route: 048
     Dates: start: 20091102, end: 20100330
  3. CANDESARTAN CILEXETIL [Suspect]
     Dosage: 8 MG, QD
     Route: 048
     Dates: start: 20091127, end: 20100330
  4. ALFAROL [Suspect]
     Dosage: 0.5 UG, QD
     Route: 048
     Dates: start: 20100125, end: 20100330
  5. SANDIMMUNE [Concomitant]
     Dosage: 5 MG, UNK
     Route: 042
     Dates: start: 20100331
  6. MINOCYCLINE HCL [Concomitant]
     Dosage: 100 MG, UNK
     Route: 048
     Dates: start: 20091102, end: 20100330
  7. MAGMITT KENEI [Concomitant]
     Dosage: 660 MG, UNK
     Route: 048
     Dates: start: 20091117, end: 20100330
  8. FAMOTIDINE [Concomitant]
     Dosage: 40 MG, UNK
     Route: 048
     Dates: start: 20091109, end: 20100330
  9. NICOTINAMIDE [Concomitant]
     Dosage: 900 MG, UNK
     Route: 048
     Dates: start: 20100225, end: 20100330
  10. PREDONINE-1 [Concomitant]
     Dosage: 20 MG, UNK
     Route: 042
     Dates: start: 20100331

REACTIONS (3)
  - BLOOD SODIUM DECREASED [None]
  - COMPUTERISED TOMOGRAM ABDOMEN ABNORMAL [None]
  - GASTROINTESTINAL PERFORATION [None]
